FAERS Safety Report 4863671-1 (Version None)
Quarter: 2005Q4

REPORT INFORMATION
  Report Type: 
  Country: None (occurrence: None)
  Receive Date: 20051222
  Receipt Date: 20050620
  Transmission Date: 20060501
  Serious: No
  Sender: FDA-Public Use
  Company Number: US-GLAXOSMITHKLINE-A0563378A

PATIENT
  Age: 81 Year
  Sex: Female

DRUGS (5)
  1. FLONASE [Suspect]
     Dosage: 2SPR TWICE PER DAY
     Route: 045
     Dates: start: 20050513
  2. AMARYL [Concomitant]
  3. TOPROL-XL [Concomitant]
  4. TYLENOL [Concomitant]
  5. HYPOTEARS DDPF [Concomitant]

REACTIONS (2)
  - HEADACHE [None]
  - SNEEZING [None]
